FAERS Safety Report 4431813-8 (Version None)
Quarter: 2004Q3

REPORT INFORMATION
  Report Type: 
  Country: None (occurrence: None)
  Receive Date: 20040825
  Receipt Date: 20040816
  Transmission Date: 20050211
  Serious: Yes (Hospitalization, Other)
  Sender: FDA-Public Use
  Company Number: US-JNJFOC-20040502834

PATIENT
  Sex: Female
  Weight: 100.25 kg

DRUGS (27)
  1. DURAGESIC [Suspect]
     Route: 062
  2. DURAGESIC [Suspect]
     Route: 062
  3. DURAGESIC [Suspect]
     Route: 062
  4. DURAGESIC [Suspect]
     Route: 062
  5. DURAGESIC [Suspect]
     Route: 062
  6. PERCOCET [Concomitant]
     Dosage: 10 MG OXYCODONE HYDROCHLORIDE/325 MG ACETAMINOPHEN, ONE TO TWO EVERY FOUR TO SIX HOURS
     Route: 049
  7. PERCOCET [Concomitant]
     Dosage: OXYCODONE 2.75 MG PLUS ACETAMINOPHEN 325 MG EVERY SIX HOURS
     Route: 049
  8. RESTORIL [Concomitant]
     Indication: SLEEP DISORDER THERAPY
     Dosage: PATIENT TAKES MEDICATION AT NIGHT
     Route: 049
  9. COMBIPATCH [Concomitant]
     Route: 062
  10. COMBIPATCH [Concomitant]
     Indication: HORMONE REPLACEMENT THERAPY
     Dosage: 50/140 MG, ONE IN 84 HOURS
     Route: 062
  11. ZOFRAN [Concomitant]
     Indication: NAUSEA
     Dosage: TAKES AS NEEDED
     Route: 049
  12. PHENERGAN HCL [Concomitant]
     Indication: NAUSEA
     Dosage: TAKES AS NEEDED
     Route: 049
  13. ATIVAN [Concomitant]
     Indication: NAUSEA
     Dosage: TAKES AS NEEDED
     Route: 049
  14. ZOMITA [Concomitant]
     Indication: MULTIPLE MYELOMA
     Route: 042
  15. KYTRIL [Concomitant]
     Indication: NAUSEA
     Route: 042
  16. VELCADE [Concomitant]
     Indication: MULTIPLE MYELOMA
     Route: 042
  17. ATENOLOL [Concomitant]
     Indication: HYPERTENSION
     Route: 049
  18. LASIX [Concomitant]
     Route: 049
  19. VOLTAREN [Concomitant]
     Indication: BACK PAIN
     Route: 049
  20. PAXIL [Concomitant]
     Indication: DEPRESSION
     Route: 049
  21. OSCAL [Concomitant]
     Route: 049
  22. FLONASE [Concomitant]
     Indication: SEASONAL ALLERGY
     Route: 045
  23. CLARINEX [Concomitant]
     Indication: SEASONAL ALLERGY
     Route: 049
  24. ROBAXIN [Concomitant]
     Indication: BACK PAIN
     Route: 049
  25. KLOR-CON [Concomitant]
     Indication: PROPHYLAXIS
     Route: 049
  26. BENADRYL [Concomitant]
     Indication: NAUSEA
  27. MORPHINE [Concomitant]
     Indication: PAIN
     Route: 042

REACTIONS (8)
  - ARTHRALGIA [None]
  - COMA [None]
  - DEPRESSED LEVEL OF CONSCIOUSNESS [None]
  - EMOTIONAL DISTRESS [None]
  - NAUSEA [None]
  - PAIN [None]
  - PHARMACEUTICAL PRODUCT COMPLAINT [None]
  - THERAPEUTIC RESPONSE DECREASED [None]
